FAERS Safety Report 7463247-6 (Version None)
Quarter: 2011Q2

REPORT INFORMATION
  Report Type: 
  Country: None (occurrence: None)
  Receive Date: 20110506
  Receipt Date: 20110429
  Transmission Date: 20111010
  Serious: Yes (Death, Life-Threatening, Other)
  Sender: FDA-Public Use
  Company Number: US-CELGENEUS-163-21880-09110189

PATIENT
  Sex: Female
  Weight: 60.382 kg

DRUGS (5)
  1. REVLIMID [Suspect]
     Dosage: 5 MILLIGRAM
     Route: 048
     Dates: start: 20060605, end: 20091007
  2. REVLIMID [Suspect]
     Dosage: 5 MILLIGRAM
     Route: 048
     Dates: start: 20040101
  3. VITAMIN B6 [Concomitant]
     Route: 065
  4. EPOGEN [Concomitant]
     Route: 065
  5. ARANESP [Concomitant]
     Dosage: 200 MILLIGRAM
     Route: 065

REACTIONS (1)
  - ACUTE LYMPHOCYTIC LEUKAEMIA [None]
